FAERS Safety Report 5078216-3 (Version None)
Quarter: 2006Q3

REPORT INFORMATION
  Report Type: 
  Country: None (occurrence: None)
  Receive Date: 20060725
  Receipt Date: 20050528
  Transmission Date: 20061208
  Serious: Yes (Other)
  Sender: FDA-Public Use
  Company Number: 05-000506

PATIENT
  Sex: Female

DRUGS (2)
  1. FEMHRT [Suspect]
     Indication: HORMONE REPLACEMENT THERAPY
     Dosage: 5/1000 UG, ORAL
     Route: 048
     Dates: start: 19960101, end: 20020101
  2. PREMPHASE (PREMARIN;CYCRIN 14/14) [Suspect]
     Indication: HORMONE REPLACEMENT THERAPY
     Dosage: ORAL
     Route: 048
     Dates: start: 19960101, end: 20020101

REACTIONS (1)
  - BREAST CANCER [None]
